FAERS Safety Report 9944945 (Version 1)
Quarter: 2014Q1

REPORT INFORMATION
  Report Type: Spontaneous
  Country: US (occurrence: US)
  Receive Date: 20140303
  Receipt Date: 20140303
  Transmission Date: 20141002
  Serious: No
  Sender: FDA-Public Use
  Company Number: US-AMGEN-USASP2013072685

PATIENT
  Age: 28 Year
  Sex: Male
  Weight: 117.91 kg

DRUGS (2)
  1. ENBREL [Suspect]
     Indication: PRODUCT USED FOR UNKNOWN INDICATION
     Dosage: 50 MG, QWK
     Route: 058
  2. TYLENOL                            /00020001/ [Concomitant]
     Dosage: 650 MG, 8 HR

REACTIONS (1)
  - Injection site erythema [Unknown]
